FAERS Safety Report 17453709 (Version 3)
Quarter: 2020Q4

REPORT INFORMATION
  Report Type: Spontaneous
  Country: AT (occurrence: AT)
  Receive Date: 20200224
  Receipt Date: 20201023
  Transmission Date: 20210113
  Serious: Yes (Death, Hospitalization, Other)
  Sender: FDA-Public Use
  Company Number: AT-B.I. PHARMACEUTICALS,INC./RIDGEFIELD-2020-BI-009838

PATIENT
  Age: 52 Year

DRUGS (10)
  1. CARBOPLATIN;PEMETREXED [Concomitant]
     Indication: PRODUCT USED FOR UNKNOWN INDICATION
     Dosage: CARBOPLATIN AUC5 / PEMETREXED 500MG, 4 CYCLES
     Dates: start: 201712
  2. DENOSUMAB [Concomitant]
     Active Substance: DENOSUMAB
     Indication: PRODUCT USED FOR UNKNOWN INDICATION
     Dosage: ONCE EVERY 4 WEEKS
     Route: 058
     Dates: end: 2019
  3. OSIMERTINIB. [Concomitant]
     Active Substance: OSIMERTINIB
     Indication: PRODUCT USED FOR UNKNOWN INDICATION
     Dates: start: 201901
  4. GILOTRIF [Suspect]
     Active Substance: AFATINIB
     Indication: NON-SMALL CELL LUNG CANCER STAGE IV
  5. VARGATEF [Suspect]
     Active Substance: NINTEDANIB
     Indication: GENE MUTATION
  6. DOCETAXEL. [Concomitant]
     Active Substance: DOCETAXEL
     Indication: PRODUCT USED FOR UNKNOWN INDICATION
     Dosage: EVERY 3 WEEKS
     Dates: start: 201910
  7. GILOTRIF [Suspect]
     Active Substance: AFATINIB
     Indication: METASTASES TO BONE
  8. GILOTRIF [Suspect]
     Active Substance: AFATINIB
     Indication: METASTASIS
  9. VARGATEF [Suspect]
     Active Substance: NINTEDANIB
     Indication: NON-SMALL CELL LUNG CANCER
     Route: 048
     Dates: start: 201910
  10. GILOTRIF [Suspect]
     Active Substance: AFATINIB
     Indication: EGFR GENE MUTATION
     Dosage: REDUCED DOSE DUE TO LITTLE?BODY WEIGHT AND FEMALE?GENDER
     Dates: start: 201611, end: 201712

REACTIONS (12)
  - Metastases to bone [Unknown]
  - Hydrocephalus [Fatal]
  - Fear [Fatal]
  - Headache [Fatal]
  - Metastases to meninges [Fatal]
  - Agitation [Fatal]
  - Hallucination [Fatal]
  - Pain [Fatal]
  - Spinal pain [Fatal]
  - Fluid imbalance [Fatal]
  - Metastases to lung [Unknown]
  - Neuropathy peripheral [Fatal]

NARRATIVE: CASE EVENT DATE: 201712
